FAERS Safety Report 14739155 (Version 3)
Quarter: 2018Q3

REPORT INFORMATION
  Report Type: Spontaneous
  Country: NZ (occurrence: NZ)
  Receive Date: 20180410
  Receipt Date: 20180724
  Transmission Date: 20181010
  Serious: Yes (Hospitalization, Other)
  Sender: FDA-Public Use
  Company Number: NZ-ABBVIE-18K-118-2315655-00

PATIENT
  Age: 12 Year
  Sex: Male
  Weight: 53.9 kg

DRUGS (3)
  1. HUMIRA [Suspect]
     Active Substance: ADALIMUMAB
     Route: 058
     Dates: start: 201603, end: 20180306
  2. HUMIRA [Suspect]
     Active Substance: ADALIMUMAB
     Indication: PSORIASIS
     Route: 058
     Dates: start: 2015
  3. METHOTREXATE. [Concomitant]
     Active Substance: METHOTREXATE
     Indication: PSORIASIS
     Dates: start: 2016, end: 201803

REACTIONS (13)
  - Osteitis [Not Recovered/Not Resolved]
  - Immunosuppression [Unknown]
  - Fibrosis [Unknown]
  - Inflammation [Not Recovered/Not Resolved]
  - Pyrexia [Unknown]
  - Neck mass [Recovering/Resolving]
  - Fatigue [Unknown]
  - C-reactive protein increased [Unknown]
  - Paranasal cyst [Unknown]
  - Malaise [Not Recovered/Not Resolved]
  - Bone neoplasm [Not Recovered/Not Resolved]
  - Lymphadenopathy [Unknown]
  - Lymphadenitis [Unknown]

NARRATIVE: CASE EVENT DATE: 2018
